FAERS Safety Report 6504138-4 (Version None)
Quarter: 2009Q4

REPORT INFORMATION
  Report Type: 
  Country: None (occurrence: None)
  Receive Date: 20091215
  Receipt Date: 20091130
  Transmission Date: 20100525
  Serious: Yes (Death, Hospitalization)
  Sender: FDA-Public Use
  Company Number: 2009003421

PATIENT
  Age: 73 Year
  Sex: Male

DRUGS (10)
  1. TARCEVA [Suspect]
     Indication: LUNG CARCINOMA CELL TYPE UNSPECIFIED RECURRENT
     Dosage: (150 MG,QD), ORAL
     Route: 048
     Dates: start: 20090721, end: 20090909
  2. ENOXAPARIN SODIUM [Concomitant]
  3. BUPRENORPHINE HYDROCHLORIDE [Concomitant]
  4. X-PREP (SENNA LEAF) [Concomitant]
  5. PANTORC (PANTOPRAZOLE SODIUM) [Concomitant]
  6. PLASIL (METOCLOPRAMIDE HYDROCHLORIDE) [Concomitant]
  7. SOLDESAM (DEXAMETHASONE SODIUM PHOSPHATE) [Concomitant]
  8. MORPHINE [Concomitant]
  9. CHLORPROMAZINE HCL [Concomitant]
  10. DIFLUCAN [Concomitant]

REACTIONS (8)
  - ABDOMINAL PAIN [None]
  - COGNITIVE DISORDER [None]
  - DYSPNOEA [None]
  - HYPERKALAEMIA [None]
  - HYPERPYREXIA [None]
  - NAUSEA [None]
  - NO THERAPEUTIC RESPONSE [None]
  - THROMBOCYTOPENIA [None]
